FAERS Safety Report 5035476-2 (Version None)
Quarter: 2006Q2

REPORT INFORMATION
  Report Type: 
  Country: None (occurrence: None)
  Receive Date: 20060622
  Receipt Date: 20060613
  Transmission Date: 20061013
  Serious: Yes (Death)
  Sender: FDA-Public Use
  Company Number: 163-20785-06030074

PATIENT
  Age: 58 Year
  Sex: Male

DRUGS (1)
  1. THALOMID [Suspect]
     Indication: MALIGNANT MELANOMA
     Dosage: 150 MG, DAILY, ORAL
     Route: 048
     Dates: start: 20060206, end: 20060101

REACTIONS (2)
  - BRAIN CANCER METASTATIC [None]
  - HAEMORRHAGIC STROKE [None]
